FAERS Safety Report 4749936-2 (Version None)
Quarter: 2005Q3

REPORT INFORMATION
  Report Type: 
  Country: None (occurrence: None)
  Receive Date: 20050822
  Receipt Date: 20050324
  Transmission Date: 20060218
  Serious: Yes (Hospitalization, Disabling)
  Sender: FDA-Public Use
  Company Number: CA-MERCK-0503CAN00244

PATIENT
  Age: 53 Year
  Sex: Female
  Weight: 58 kg

DRUGS (30)
  1. VIOXX [Suspect]
     Indication: ARTHRITIS
     Route: 048
     Dates: start: 20000301, end: 20040901
  2. NIZATIDINE [Concomitant]
     Indication: GASTRIC DISORDER
     Route: 065
  3. [THERAPY UNSPECIFIED] [Concomitant]
     Route: 065
  4. ESTROGENS, CONJUGATED [Concomitant]
     Indication: MENOPAUSE
     Route: 065
  5. EVENING PRIMROSE OIL [Concomitant]
     Indication: ARTHRITIS
     Route: 065
     Dates: start: 19971001
  6. EVENING PRIMROSE OIL [Concomitant]
     Route: 065
     Dates: start: 20031201
  7. EVENING PRIMROSE OIL [Concomitant]
     Route: 065
     Dates: start: 20040101, end: 20040201
  8. PROPRANOLOL HYDROCHLORIDE [Concomitant]
     Route: 065
  9. CHONDROITIN SULFATE SODIUM AND GLUCOSAMINE HYDROCHLORIDE [Concomitant]
     Indication: ARTHRITIS
     Route: 065
  10. PRILOSEC [Concomitant]
     Indication: GASTRIC DISORDER
     Route: 065
  11. ROSUVASTATIN CALCIUM [Concomitant]
     Indication: BLOOD CHOLESTEROL INCREASED
     Route: 065
  12. IRON (UNSPECIFIED) [Concomitant]
     Route: 065
  13. ETHINYL ESTRADIOL AND NORETHINDRONE ACETATE [Concomitant]
     Indication: MENOPAUSE
     Route: 065
     Dates: start: 20010101, end: 20040301
  14. [THERAPY UNSPECIFIED] [Concomitant]
     Route: 065
  15. [THERAPY UNSPECIFIED] [Concomitant]
     Route: 065
  16. ASPIRIN [Concomitant]
     Indication: CEREBROVASCULAR ACCIDENT PROPHYLAXIS
     Route: 065
  17. OMEPRAZOLE MAGNESIUM [Concomitant]
     Route: 065
  18. DERMATOLOGIC (UNSPECIFIED) [Concomitant]
     Indication: PSORIASIS
     Route: 065
  19. CEPHALEXIN [Concomitant]
     Route: 065
  20. ETHINYL ESTRADIOL AND DESOGESTREL [Concomitant]
     Route: 065
  21. CELECOXIB [Concomitant]
     Indication: ARTHRITIS
     Route: 065
     Dates: start: 20000201, end: 20000301
  22. ACETAMINOPHEN AND CODEINE PHOSPHATE [Concomitant]
     Indication: ARTHRITIS
     Route: 065
     Dates: start: 20010301
  23. TOLMETIN [Concomitant]
     Indication: ARTHRITIS
     Route: 065
     Dates: start: 19960101, end: 19961201
  24. TOLMETIN [Concomitant]
     Route: 065
     Dates: start: 19970101, end: 19970501
  25. TOLMETIN [Concomitant]
     Route: 065
     Dates: start: 19970801, end: 19970901
  26. TOLMETIN [Concomitant]
     Route: 065
     Dates: start: 19971101, end: 19971201
  27. TOLMETIN [Concomitant]
     Route: 065
     Dates: start: 19980101, end: 19981201
  28. TOLMETIN [Concomitant]
     Route: 065
     Dates: start: 19990101, end: 19990301
  29. TOLMETIN [Concomitant]
     Route: 065
     Dates: start: 19991201, end: 20000101
  30. ACETAMINOPHEN [Concomitant]
     Indication: ARTHRITIS
     Route: 065
     Dates: start: 20031201

REACTIONS (2)
  - CEREBROVASCULAR ACCIDENT [None]
  - PAIN [None]
